FAERS Safety Report 24753622 (Version 1)
Quarter: 2024Q4

REPORT INFORMATION
  Report Type: Spontaneous
  Country: US (occurrence: US)
  Receive Date: 20241219
  Receipt Date: 20241219
  Transmission Date: 20250115
  Serious: No
  Sender: ALKERMES
  Company Number: US-ALKERMES INC.-ALK-2024-003192

PATIENT
  Sex: Female

DRUGS (2)
  1. VIVITROL [Suspect]
     Active Substance: NALTREXONE
     Indication: Alcoholism
     Dosage: 380 MILLIGRAM, QMO
     Route: 030
     Dates: start: 202210
  2. VIVITROL [Suspect]
     Active Substance: NALTREXONE
     Indication: Alcohol use

REACTIONS (4)
  - Bone pain [Unknown]
  - Therapeutic response decreased [Unknown]
  - Arthralgia [Unknown]
  - Alcohol use [Unknown]

NARRATIVE: CASE EVENT DATE: 20240101
